FAERS Safety Report 11145428 (Version 1)
Quarter: 2015Q2

REPORT INFORMATION
  Report Type: Spontaneous
  Country: FR (occurrence: FR)
  Receive Date: 20150528
  Receipt Date: 20150528
  Transmission Date: 20150821
  Serious: Yes (Life-Threatening, Hospitalization)
  Sender: FDA-Public Use
  Company Number: FR-TEVA-565239ISR

PATIENT
  Age: 82 Year
  Sex: Female

DRUGS (10)
  1. PROPRANOLOL [Suspect]
     Active Substance: PROPRANOLOL\PROPRANOLOL HYDROCHLORIDE
     Dosage: .5 DOSAGE FORMS DAILY; LONG-STANDING TREATMENT
     Route: 048
  2. SOVALDI [Interacting]
     Active Substance: SOFOSBUVIR
     Indication: CHRONIC HEPATITIS C
     Dosage: 1 DOSAGE FORMS DAILY;
     Route: 048
     Dates: start: 20140908, end: 20140908
  3. PREVISCAN (FLUINDIONE) [Concomitant]
     Active Substance: FLUINDIONE
     Dosage: .125 DOSAGE FORMS DAILY; LONG-STANDING TREATMENT
     Route: 048
  4. CORDARONE [Interacting]
     Active Substance: AMIODARONE HYDROCHLORIDE
     Dosage: 1 DOSAGE FORMS DAILY; LONG-STANDING TREATMENT
     Route: 048
     Dates: end: 20140725
  5. DACLATASVIR 60 MG BMS [Interacting]
     Active Substance: DACLATASVIR
     Indication: CHRONIC HEPATITIS C
     Dosage: 1 DOSAGE FORMS DAILY; COMPASSIONATE USE
     Route: 048
     Dates: start: 20140908, end: 20140908
  6. LASILIX 40 MG [Concomitant]
     Active Substance: FUROSEMIDE
     Dosage: 1 DOSAGE FORMS DAILY; LONG-STANDING TREATMENT
     Route: 048
     Dates: end: 20140908
  7. LERCANIDIPINE 10 MG [Concomitant]
     Dosage: 1 DOSAGE FORMS DAILY; LONG-STANDING TREATMENT
     Dates: end: 20140908
  8. PREVISCAN (FLUINDIONE) [Concomitant]
     Active Substance: FLUINDIONE
     Dosage: .375 DOSAGE FORMS DAILY; LONG-STANDING TREATMENT
     Route: 048
     Dates: end: 20140908
  9. VALSARTAN. [Concomitant]
     Active Substance: VALSARTAN
     Dosage: 60 MILLIGRAM DAILY; LONG-STANDING TREATMENT
     Route: 048
     Dates: end: 20140908
  10. LEXOMIL ROCHE COMPRIME BAGUETTE [Concomitant]
     Active Substance: BROMAZEPAM
     Dosage: .25 DOSAGE FORMS DAILY; LONG-STANDING TREATMENT
     Route: 048
     Dates: end: 20140908

REACTIONS (5)
  - Bradycardia [Recovered/Resolved with Sequelae]
  - Cardio-respiratory arrest [Recovered/Resolved with Sequelae]
  - Malaise [Recovered/Resolved with Sequelae]
  - Atrioventricular block complete [Recovered/Resolved with Sequelae]
  - Drug interaction [Unknown]

NARRATIVE: CASE EVENT DATE: 20140908
